FAERS Safety Report 5960040-8 (Version None)
Quarter: 2008Q4

REPORT INFORMATION
  Report Type: 
  Country: None (occurrence: None)
  Receive Date: 20081119
  Receipt Date: 20081119
  Transmission Date: 20090506
  Serious: Yes (Life-Threatening)
  Sender: FDA-Public Use
  Company Number: None

PATIENT
  Age: 80 Year
  Sex: Female
  Weight: 61 kg

DRUGS (12)
  1. DILAUDID [Suspect]
     Indication: PAIN
     Dosage: IV (0/0.2/10)
     Route: 042
     Dates: start: 20080825, end: 20080826
  2. DILAUDID [Suspect]
     Indication: PAIN
     Dosage: IV (0/0.4/10)
     Route: 042
     Dates: start: 20080825, end: 20080826
  3. ENOXAPARIN SODIUM [Concomitant]
  4. TYLENOL (CAPLET) [Concomitant]
  5. DIGOXIN [Concomitant]
  6. FENTANYL [Concomitant]
  7. FUROSEMIDE [Concomitant]
  8. LANSOPRAZOLE [Concomitant]
  9. LEVOTHYROXINE SODIUM [Concomitant]
  10. LIDOCAINE [Concomitant]
  11. RAMIPRIL [Concomitant]
  12. ALBUTEROL [Concomitant]

REACTIONS (2)
  - LETHARGY [None]
  - UNRESPONSIVE TO STIMULI [None]
